FAERS Safety Report 9436276 (Version 2)
Quarter: 2013Q3

REPORT INFORMATION
  Report Type: Report from Study
  Country: IN (occurrence: IN)
  Receive Date: 20130802
  Receipt Date: 20130819
  Transmission Date: 20140515
  Serious: Yes (Death, Hospitalization)
  Sender: FDA-Public Use
  Company Number: PHHY2013IN080029

PATIENT
  Age: 75 Year
  Sex: Female

DRUGS (3)
  1. ACLASTA [Suspect]
     Indication: BONE PAIN
     Dosage: UNK
     Route: 042
  2. ACLASTA [Suspect]
     Dosage: UNK
     Route: 042
  3. ACLASTA [Suspect]
     Dosage: 5 MG/100 ML/YEAR
     Route: 042
     Dates: start: 2012

REACTIONS (5)
  - Death [Fatal]
  - Muscle injury [Unknown]
  - Appendicitis perforated [Unknown]
  - Abdominal pain lower [Unknown]
  - Haemorrhage [Unknown]
